FAERS Safety Report 13344936 (Version 1)
Quarter: 2017Q1

REPORT INFORMATION
  Report Type: Spontaneous
  Country: CA (occurrence: CA)
  Receive Date: 20170317
  Receipt Date: 20170317
  Transmission Date: 20170428
  Serious: Yes (Hospitalization)
  Sender: FDA-Public Use
  Company Number: CA-009507513-1703CAN005946

PATIENT
  Age: 48 Year
  Sex: Male

DRUGS (14)
  1. FUROSEMIDE. [Concomitant]
     Active Substance: FUROSEMIDE
  2. ZEPATIER [Suspect]
     Active Substance: ELBASVIR\GRAZOPREVIR
     Indication: HEPATITIS C
     Dosage: UNK
     Dates: start: 20170227
  3. PANTOLOC [Concomitant]
     Active Substance: PANTOPRAZOLE SODIUM
  4. AMLODIPINE [Concomitant]
     Active Substance: AMLODIPINE BESYLATE
  5. LABETALOL [Concomitant]
     Active Substance: LABETALOL\LABETALOL HYDROCHLORIDE
  6. ZAROXOLYN [Concomitant]
     Active Substance: METOLAZONE
  7. LANTUS [Concomitant]
     Active Substance: INSULIN GLARGINE
  8. MORPHINE [Concomitant]
     Active Substance: MORPHINE
  9. CLONIDINE. [Concomitant]
     Active Substance: CLONIDINE
  10. HYDRALAZINE [Concomitant]
     Active Substance: HYDRALAZINE HYDROCHLORIDE
  11. LIPITOR [Concomitant]
     Active Substance: ATORVASTATIN CALCIUM
  12. ALTACE [Concomitant]
     Active Substance: RAMIPRIL
  13. HUMALOG [Concomitant]
     Active Substance: INSULIN LISPRO
  14. DOMPERIDONE [Concomitant]
     Active Substance: DOMPERIDONE

REACTIONS (2)
  - Haemoptysis [Unknown]
  - Vomiting [Unknown]

NARRATIVE: CASE EVENT DATE: 20170310
